FAERS Safety Report 7779106-5 (Version None)
Quarter: 2011Q3

REPORT INFORMATION
  Report Type: 
  Country: None (occurrence: None)
  Receive Date: 20110926
  Receipt Date: 20110922
  Transmission Date: 20111222
  Serious: Yes (Hospitalization)
  Sender: FDA-Public Use
  Company Number: TW-ROXANE LABORATORIES, INC.-2011-RO-01334RO

PATIENT
  Age: 27 Year
  Sex: Male

DRUGS (2)
  1. ZOLPIDEM [Suspect]
     Dosage: 10 MG
     Route: 048
  2. ZOLPIDEM [Suspect]
     Route: 048

REACTIONS (5)
  - INSOMNIA [None]
  - DRUG WITHDRAWAL SYNDROME [None]
  - DELIRIUM [None]
  - DRUG DEPENDENCE [None]
  - SINUS TACHYCARDIA [None]
